FAERS Safety Report 24898194 (Version 1)
Quarter: 2025Q1

REPORT INFORMATION
  Report Type: Spontaneous
  Country: JP (occurrence: None)
  Receive Date: 20250129
  Receipt Date: 20250129
  Transmission Date: 20250408
  Serious: Yes (Hospitalization, Other)
  Sender: UNICHEM
  Company Number: JP-Unichem Pharmaceuticals (USA) Inc-UCM202501-000117

PATIENT
  Age: 25 Year
  Sex: Female

DRUGS (11)
  1. METRONIDAZOLE [Suspect]
     Active Substance: METRONIDAZOLE
     Indication: Colitis ulcerative
  2. CEFAZOLIN [Concomitant]
     Active Substance: CEFAZOLIN
     Indication: Colitis ulcerative
     Route: 042
  3. VANCOMYCIN [Concomitant]
     Active Substance: VANCOMYCIN
     Indication: Colitis ulcerative
     Route: 048
  4. 5-aminosalicylate acid [Concomitant]
     Indication: Colitis ulcerative
     Route: 048
  5. PREDNISOLONE [Concomitant]
     Active Substance: PREDNISOLONE
     Indication: Colitis ulcerative
     Route: 042
  6. PREDNISOLONE [Concomitant]
     Active Substance: PREDNISOLONE
     Route: 042
  7. PHENYTOIN [Concomitant]
     Active Substance: PHENYTOIN
     Indication: Tetanus
  8. PHENYTOIN [Concomitant]
     Active Substance: PHENYTOIN
     Indication: Brain oedema
  9. GLYCERIN [Concomitant]
     Active Substance: GLYCERIN
     Indication: Tetanus
  10. GLYCERIN [Concomitant]
     Active Substance: GLYCERIN
     Indication: Brain oedema
  11. ACYCLOVIR [Concomitant]
     Active Substance: ACYCLOVIR
     Indication: Herpes simplex encephalitis
     Route: 042

REACTIONS (1)
  - Posterior reversible encephalopathy syndrome [Recovered/Resolved]
